FAERS Safety Report 7346008-8 (Version None)
Quarter: 2011Q1

REPORT INFORMATION
  Report Type: 
  Country: None (occurrence: None)
  Receive Date: 20110308
  Receipt Date: 20110308
  Transmission Date: 20110831
  Serious: No
  Sender: FDA-Public Use
  Company Number: None

PATIENT
  Sex: Female
  Weight: 61.2356 kg

DRUGS (1)
  1. COPAXONE [Suspect]
     Dosage: 20 MG/ML SC INJECT 20MG (1 SYRINGE) SUBCUTANEOUSLY EVERY DAY AS DIRECTED BY YOUR PHYSICIAN
     Route: 058

REACTIONS (6)
  - DIZZINESS [None]
  - GENERALISED OEDEMA [None]
  - DYSPNOEA [None]
  - INJECTION SITE HAEMORRHAGE [None]
  - CHEST PAIN [None]
  - WRONG TECHNIQUE IN DRUG USAGE PROCESS [None]
